FAERS Safety Report 5991332-4 (Version None)
Quarter: 2008Q4

REPORT INFORMATION
  Report Type: 
  Country: None (occurrence: None)
  Receive Date: 20081202
  Receipt Date: 20071003
  Transmission Date: 20090506
  Serious: Yes (Hospitalization, Other)
  Sender: FDA-Public Use
  Company Number: WAES 0701USA03890

PATIENT
  Age: 45 Year
  Sex: Female
  Weight: 60.782 kg

DRUGS (13)
  1. FOSAMAX [Suspect]
     Indication: OSTEOPOROSIS
     Dosage: 70 MG/WKY/PO
     Route: 048
     Dates: start: 20040621, end: 20060323
  2. COMBIVENT [Concomitant]
  3. CORGARD [Concomitant]
  4. DIFFERIN [Concomitant]
  5. LASIX [Concomitant]
  6. LEVOXYL [Concomitant]
  7. MAXALT [Concomitant]
  8. SINGULAIR [Concomitant]
  9. VICODIN ES [Concomitant]
  10. XANAX [Concomitant]
  11. ALLOPURINOL [Concomitant]
  12. BENZOYL PEROXIDE (+) ERYTHROMYCI [Concomitant]
  13. POTASSIUM CHLORIDE [Concomitant]

REACTIONS (24)
  - ACTINOMYCOSIS [None]
  - ADVERSE DRUG REACTION [None]
  - ANXIETY [None]
  - ASTHMA [None]
  - CELLULITIS [None]
  - DENTAL CARIES [None]
  - DEPRESSION [None]
  - FACIAL PAIN [None]
  - INSOMNIA [None]
  - MOUTH INJURY [None]
  - ORAL INFECTION [None]
  - OSTEOMYELITIS [None]
  - OSTEONECROSIS [None]
  - POSTOPERATIVE ABSCESS [None]
  - POSTOPERATIVE WOUND INFECTION [None]
  - RHINITIS [None]
  - SINUSITIS [None]
  - SKIN LESION [None]
  - TEMPOROMANDIBULAR JOINT SYNDROME [None]
  - TRIGEMINAL NEURALGIA [None]
  - TRISMUS [None]
  - UPPER RESPIRATORY TRACT INFECTION [None]
  - WISDOM TEETH REMOVAL [None]
  - WOUND INFECTION [None]
